FAERS Safety Report 7409506-4 (Version None)
Quarter: 2011Q1

REPORT INFORMATION
  Report Type: 
  Country: None (occurrence: None)
  Receive Date: 20110301
  Receipt Date: 20100701
  Transmission Date: 20110831
  Serious: Yes (Hospitalization)
  Sender: FDA-Public Use
  Company Number: RB-12341-2010

PATIENT
  Age: 54 Year
  Sex: Female

DRUGS (5)
  1. SUBOXONE [Suspect]
     Indication: DRUG DEPENDENCE
     Dosage: SEE IMAGE
     Route: 060
     Dates: start: 20100501
  2. SUBOXONE [Suspect]
     Indication: DRUG DEPENDENCE
     Dosage: SEE IMAGE
     Route: 060
     Dates: start: 20090101, end: 20100501
  3. SUBOXONE [Suspect]
     Indication: DRUG DEPENDENCE
     Dosage: SEE IMAGE
     Route: 060
     Dates: start: 20100501, end: 20100501
  4. SUBOXONE [Suspect]
     Indication: DRUG DEPENDENCE
     Dosage: SEE IMAGE
     Route: 060
     Dates: start: 20050101, end: 20071001
  5. SUBOXONE [Suspect]
     Indication: DRUG DEPENDENCE
     Dosage: SEE IMAGE
     Route: 060
     Dates: start: 20071101, end: 20090101

REACTIONS (1)
  - DRUG WITHDRAWAL SYNDROME [None]
